FAERS Safety Report 9127098 (Version 2)
Quarter: 2014Q2

REPORT INFORMATION
  Report Type: Spontaneous
  Country: JP (occurrence: JP)
  Receive Date: 20130125
  Receipt Date: 20140627
  Transmission Date: 20141212
  Serious: Yes (Other)
  Sender: FDA-Public Use
  Company Number: PHHY2013JP004713

PATIENT
  Age: 13 Year
  Sex: Male
  Weight: 40.3 kg

DRUGS (8)
  1. ETOPOSIDE [Suspect]
     Indication: DESMOPLASTIC SMALL ROUND CELL TUMOUR
     Dosage: 100 MG/M2, UNK
     Route: 041
  2. DOXORUBICIN [Suspect]
     Indication: DESMOPLASTIC SMALL ROUND CELL TUMOUR
     Dosage: 37.5 MG/M2, UNK
  3. VINCRISTINE [Suspect]
     Indication: DESMOPLASTIC SMALL ROUND CELL TUMOUR
     Dosage: 1.5 MG/M2, UNK
  4. IFOSFAMIDE [Suspect]
     Indication: DESMOPLASTIC SMALL ROUND CELL TUMOUR
     Dosage: 1800 MG/M2, UNK
  5. CYCLOPHOSPHAMIDE [Suspect]
     Indication: DESMOPLASTIC SMALL ROUND CELL TUMOUR
     Dosage: 1200 MG/M2, UNK
  6. CISPLATIN [Concomitant]
     Indication: DESMOPLASTIC SMALL ROUND CELL TUMOUR
  7. IRRADIATION [Concomitant]
     Indication: DESMOPLASTIC SMALL ROUND CELL TUMOUR
     Dosage: 28.5 GY, UNK
  8. SODIUM THIOSULFATE [Concomitant]

REACTIONS (6)
  - Generalised oedema [Unknown]
  - Blood creatine phosphokinase increased [Unknown]
  - Pleural effusion [Recovered/Resolved]
  - Myoglobinuria [Unknown]
  - Haematotoxicity [Unknown]
  - Febrile neutropenia [Unknown]
